FAERS Safety Report 9803468 (Version 1)
Quarter: 2014Q1

REPORT INFORMATION
  Report Type: Spontaneous
  Country: US (occurrence: None)
  Receive Date: 20140107
  Receipt Date: 20140107
  Transmission Date: 20141002
  Serious: Yes (Hospitalization)
  Sender: FDA-Public Use
  Company Number: None

PATIENT
  Age: 72 Year
  Sex: Female
  Weight: 43.64 kg

DRUGS (1)
  1. CISPLATIN [Suspect]

REACTIONS (8)
  - Respiratory tract infection viral [None]
  - Throat irritation [None]
  - Dysphagia [None]
  - Speech disorder [None]
  - Influenza A virus test positive [None]
  - Blood potassium decreased [None]
  - Blood sodium decreased [None]
  - Blood glucose increased [None]
